FAERS Safety Report 9303216 (Version 4)
Quarter: 2013Q4

REPORT INFORMATION
  Report Type: Spontaneous
  Country: US (occurrence: US)
  Receive Date: 20130522
  Receipt Date: 20131226
  Transmission Date: 20140711
  Serious: Yes (Other)
  Sender: FDA-Public Use
  Company Number: US-PFIZER INC-2013157108

PATIENT
  Age: 46 Year
  Sex: Male
  Weight: 92.06 kg

DRUGS (7)
  1. LYRICA [Suspect]
     Indication: DIABETIC NEUROPATHY
     Dosage: 100 MG, 2X/DAY
     Route: 048
     Dates: start: 2011, end: 2013
  2. METFORMIN [Concomitant]
     Indication: DIABETES MELLITUS
     Dosage: UNK
  3. LISINOPRIL [Concomitant]
     Dosage: 20 MG, 1X/DAY
     Route: 048
  4. LOVASTATIN [Concomitant]
     Dosage: 10 MG, 1X/DAY
     Route: 048
  5. GLUCOPHAGE [Concomitant]
     Dosage: 1700 MG, 1X/DAY (IN THE MORNING)
     Route: 048
  6. METOCLOPRAMIDE [Concomitant]
     Dosage: 10 MG, 4X/DAY (BEFORE MEALS AND AT BEDTIME)
     Route: 048
  7. ASPIRIN [Concomitant]
     Dosage: 325 MG, 1X/DAY
     Route: 048

REACTIONS (5)
  - Dehydration [Unknown]
  - Vomiting [Unknown]
  - Asthenia [Unknown]
  - Pain [Unknown]
  - Product commingling [Unknown]
